FAERS Safety Report 21686849 (Version 1)
Quarter: 2022Q4

REPORT INFORMATION
  Report Type: Spontaneous
  Country: JP (occurrence: JP)
  Receive Date: 20221206
  Receipt Date: 20221206
  Transmission Date: 20230112
  Serious: Yes (Other)
  Sender: FDA-Public Use
  Company Number: JP-ASTELLAS-2022JP017586

PATIENT
  Age: 78 Year
  Sex: Male

DRUGS (1)
  1. PADCEV [Suspect]
     Active Substance: ENFORTUMAB VEDOTIN-EJFV
     Indication: Bladder cancer stage IV
     Dosage: 1.25 MG/KG, ADMINISTERED ON DAY1, 8, 15 IN 28 CYCLE
     Route: 065

REACTIONS (3)
  - Skin toxicity [Recovered/Resolved]
  - Dermatitis bullous [Recovered/Resolved]
  - Biopsy skin abnormal [Recovered/Resolved]
